FAERS Safety Report 14015069 (Version 1)
Quarter: 2017Q3

REPORT INFORMATION
  Report Type: Spontaneous
  Country: US (occurrence: US)
  Receive Date: 20170927
  Receipt Date: 20170927
  Transmission Date: 20171128
  Serious: Yes (Other)
  Sender: FDA-Public Use
  Company Number: US-AMGEN-USASP2017143440

PATIENT
  Age: 43 Year
  Sex: Female

DRUGS (2)
  1. ARANESP [Suspect]
     Active Substance: DARBEPOETIN ALFA
     Indication: PRODUCT USED FOR UNKNOWN INDICATION
     Dosage: 200 MUG, UNK
     Route: 065
     Dates: start: 20170917
  2. ARANESP [Suspect]
     Active Substance: DARBEPOETIN ALFA
     Dosage: 200 MUG, UNK
     Route: 065
     Dates: start: 20170919

REACTIONS (3)
  - Haemorrhage [Unknown]
  - Haemoglobin abnormal [Unknown]
  - Renal failure [Unknown]
